FAERS Safety Report 12425792 (Version 1)
Quarter: 2016Q2

REPORT INFORMATION
  Report Type: Spontaneous
  Country: DK (occurrence: DK)
  Receive Date: 20160601
  Receipt Date: 20160601
  Transmission Date: 20160815
  Serious: Yes (Hospitalization, Disabling)
  Sender: FDA-Public Use
  Company Number: DK-JNJFOC-20160527114

PATIENT
  Age: 47 Year
  Sex: Female

DRUGS (2)
  1. SIBELIUM [Concomitant]
     Active Substance: FLUNARIZINE
     Indication: PRODUCT USED FOR UNKNOWN INDICATION
     Dosage: AT BED TIME
     Route: 065
  2. ALMOGRAN [Suspect]
     Active Substance: ALMOTRIPTAN MALATE
     Indication: MIGRAINE
     Dosage: 2-3 TIMES PER WEEKLY (WHEN ATTACK)
     Route: 048
     Dates: start: 20110401, end: 201203

REACTIONS (8)
  - Cognitive disorder [Unknown]
  - Hemiparesis [Unknown]
  - Memory impairment [Unknown]
  - Mental disorder [Unknown]
  - Hemiplegia [Unknown]
  - Cerebral thrombosis [Unknown]
  - Peroneal nerve palsy [Unknown]
  - Disorientation [Unknown]

NARRATIVE: CASE EVENT DATE: 20120301
